FAERS Safety Report 24846445 (Version 1)
Quarter: 2025Q1

REPORT INFORMATION
  Report Type: Report from Study
  Country: US (occurrence: US)
  Receive Date: 20250115
  Receipt Date: 20250115
  Transmission Date: 20250409
  Serious: Yes (Other)
  Sender: ALEXION PHARMACEUTICALS
  Company Number: US-ALXN-202501USA005671US

PATIENT

DRUGS (4)
  1. STRENSIQ [Suspect]
     Active Substance: ASFOTASE ALFA
     Route: 065
  2. STRENSIQ [Suspect]
     Active Substance: ASFOTASE ALFA
     Route: 065
  3. STRENSIQ [Suspect]
     Active Substance: ASFOTASE ALFA
     Route: 065
  4. STRENSIQ [Suspect]
     Active Substance: ASFOTASE ALFA
     Route: 065

REACTIONS (11)
  - Neuropathy peripheral [Unknown]
  - Injection site erythema [Unknown]
  - Injection site hypertrophy [Unknown]
  - Injection site swelling [Unknown]
  - Pain in extremity [Recovered/Resolved]
  - Tremor [Recovered/Resolved]
  - COVID-19 [Unknown]
  - Insomnia [Unknown]
  - Osteopenia [Unknown]
  - Tendon disorder [Not Recovered/Not Resolved]
  - Gait disturbance [Not Recovered/Not Resolved]
